FAERS Safety Report 22876124 (Version 12)
Quarter: 2024Q2

REPORT INFORMATION
  Report Type: Spontaneous
  Country: CA (occurrence: CA)
  Receive Date: 20230829
  Receipt Date: 20240612
  Transmission Date: 20240715
  Serious: Yes (Hospitalization, Other)
  Sender: FDA-Public Use
  Company Number: CA-SAKK-2020SA095613AA

PATIENT
  Age: 78 Year
  Sex: Female
  Weight: 93 kg

DRUGS (96)
  1. BISACODYL [Suspect]
     Active Substance: BISACODYL
     Indication: Product used for unknown indication
     Dosage: 8.6 MILLIGRAM
  2. BISACODYL [Suspect]
     Active Substance: BISACODYL
     Dosage: 8.6 MILLIGRAM
  3. BISACODYL [Suspect]
     Active Substance: BISACODYL
  4. BISACODYL [Suspect]
     Active Substance: BISACODYL
     Dosage: 8.6 MILLIGRAM
  5. BISACODYL [Suspect]
     Active Substance: BISACODYL
     Dosage: 8.6 MILLIGRAM
  6. BISACODYL [Suspect]
     Active Substance: BISACODYL
     Dosage: 8.6 MILLIGRAM
  7. BISACODYL [Suspect]
     Active Substance: BISACODYL
     Dosage: 8.6 MILLIGRAM
  8. BISACODYL [Suspect]
     Active Substance: BISACODYL
     Dosage: 8.6 MILLIGRAM
  9. BISACODYL [Suspect]
     Active Substance: BISACODYL
     Dosage: 8.6 MILLIGRAM
  10. BISACODYL [Suspect]
     Active Substance: BISACODYL
     Dosage: 8.6 MILLIGRAM
  11. BISACODYL [Suspect]
     Active Substance: BISACODYL
     Dosage: 8.6 MILLIGRAM
  12. BISACODYL [Suspect]
     Active Substance: BISACODYL
     Dosage: 8.6 MILLIGRAM
  13. BISACODYL [Suspect]
     Active Substance: BISACODYL
     Dosage: 8.6 MILLIGRAM
  14. BISACODYL [Suspect]
     Active Substance: BISACODYL
     Dosage: 8.6 MILLIGRAM
  15. BISACODYL [Suspect]
     Active Substance: BISACODYL
     Dosage: 8.6 MILLIGRAM
  16. BISACODYL [Suspect]
     Active Substance: BISACODYL
     Dosage: 8.6 MILLIGRAM
  17. BISACODYL [Suspect]
     Active Substance: BISACODYL
     Dosage: 8.6 MILLIGRAM
  18. BISACODYL [Suspect]
     Active Substance: BISACODYL
     Dosage: 8.6 MILLIGRAM
  19. BISACODYL [Suspect]
     Active Substance: BISACODYL
     Dosage: 8.6 MILLIGRAM
  20. BISACODYL [Suspect]
     Active Substance: BISACODYL
     Dosage: 8.6 MILLIGRAM
  21. BISACODYL [Suspect]
     Active Substance: BISACODYL
     Dosage: 8.6 MILLIGRAM
  22. BISACODYL [Suspect]
     Active Substance: BISACODYL
     Dosage: 8.6 MILLIGRAM
  23. BISACODYL [Suspect]
     Active Substance: BISACODYL
     Dosage: 8.6 MILLIGRAM
  24. BISACODYL [Suspect]
     Active Substance: BISACODYL
     Dosage: 8.6 MILLIGRAM
  25. ZANTAC 75 [Suspect]
     Active Substance: RANITIDINE HYDROCHLORIDE
     Indication: Gastrooesophageal reflux disease
     Route: 048
  26. ZANTAC 75 [Suspect]
     Active Substance: RANITIDINE HYDROCHLORIDE
     Route: 048
  27. ZANTAC 75 [Suspect]
     Active Substance: RANITIDINE HYDROCHLORIDE
     Route: 048
  28. ZANTAC 75 [Suspect]
     Active Substance: RANITIDINE HYDROCHLORIDE
     Route: 048
  29. ZANTAC 75 [Suspect]
     Active Substance: RANITIDINE HYDROCHLORIDE
     Route: 048
  30. ZANTAC 75 [Suspect]
     Active Substance: RANITIDINE HYDROCHLORIDE
     Route: 048
  31. ZANTAC 75 [Suspect]
     Active Substance: RANITIDINE HYDROCHLORIDE
     Route: 048
  32. ZANTAC 75 [Suspect]
     Active Substance: RANITIDINE HYDROCHLORIDE
     Route: 048
  33. ZANTAC 75 [Suspect]
     Active Substance: RANITIDINE HYDROCHLORIDE
     Route: 048
  34. ZANTAC 75 [Suspect]
     Active Substance: RANITIDINE HYDROCHLORIDE
     Route: 048
  35. ZANTAC 75 [Suspect]
     Active Substance: RANITIDINE HYDROCHLORIDE
     Route: 048
  36. ZANTAC 75 [Suspect]
     Active Substance: RANITIDINE HYDROCHLORIDE
     Route: 048
  37. ZANTAC 75 [Suspect]
     Active Substance: RANITIDINE HYDROCHLORIDE
     Route: 048
  38. ZANTAC 75 [Suspect]
     Active Substance: RANITIDINE HYDROCHLORIDE
     Route: 048
  39. ZANTAC 75 [Suspect]
     Active Substance: RANITIDINE HYDROCHLORIDE
     Route: 048
  40. ZANTAC 75 [Suspect]
     Active Substance: RANITIDINE HYDROCHLORIDE
     Route: 048
  41. ZANTAC 75 [Suspect]
     Active Substance: RANITIDINE HYDROCHLORIDE
     Route: 048
  42. ZANTAC 75 [Suspect]
     Active Substance: RANITIDINE HYDROCHLORIDE
     Route: 048
  43. ZANTAC 75 [Suspect]
     Active Substance: RANITIDINE HYDROCHLORIDE
     Route: 048
  44. ZANTAC 75 [Suspect]
     Active Substance: RANITIDINE HYDROCHLORIDE
     Route: 048
  45. ZANTAC 75 [Suspect]
     Active Substance: RANITIDINE HYDROCHLORIDE
     Route: 048
  46. ZANTAC 75 [Suspect]
     Active Substance: RANITIDINE HYDROCHLORIDE
     Route: 048
  47. ZANTAC 75 [Suspect]
     Active Substance: RANITIDINE HYDROCHLORIDE
     Route: 048
  48. ZANTAC 75 [Suspect]
     Active Substance: RANITIDINE HYDROCHLORIDE
     Route: 065
  49. LANSOPRAZOLE [Suspect]
     Active Substance: LANSOPRAZOLE
     Indication: Gastrooesophageal reflux disease
     Dosage: UNK
     Route: 048
  50. LANSOPRAZOLE [Suspect]
     Active Substance: LANSOPRAZOLE
     Dosage: PROLONGED-RELEASE CAPSULE
     Route: 048
  51. LANSOPRAZOLE [Suspect]
     Active Substance: LANSOPRAZOLE
     Dosage: UNK
  52. LANSOPRAZOLE [Suspect]
     Active Substance: LANSOPRAZOLE
     Dosage: UNK
     Route: 048
  53. LANSOPRAZOLE [Suspect]
     Active Substance: LANSOPRAZOLE
     Dosage: UNK
  54. LANSOPRAZOLE [Suspect]
     Active Substance: LANSOPRAZOLE
     Dosage: UNK
     Route: 048
  55. LANSOPRAZOLE [Suspect]
     Active Substance: LANSOPRAZOLE
     Dosage: UNK
  56. LANSOPRAZOLE [Suspect]
     Active Substance: LANSOPRAZOLE
     Dosage: PROLONGED-RELEASE CAPSULE
     Route: 048
  57. LANSOPRAZOLE [Suspect]
     Active Substance: LANSOPRAZOLE
     Dosage: UNK
  58. LANSOPRAZOLE [Suspect]
     Active Substance: LANSOPRAZOLE
     Dosage: UNK
     Route: 048
  59. LANSOPRAZOLE [Suspect]
     Active Substance: LANSOPRAZOLE
     Dosage: UNK
  60. LANSOPRAZOLE [Suspect]
     Active Substance: LANSOPRAZOLE
     Dosage: UNK
     Route: 048
  61. LANSOPRAZOLE [Suspect]
     Active Substance: LANSOPRAZOLE
     Dosage: UNK
  62. LANSOPRAZOLE [Suspect]
     Active Substance: LANSOPRAZOLE
     Dosage: PROLONGED-RELEASE CAPSULE
     Route: 048
  63. LANSOPRAZOLE [Suspect]
     Active Substance: LANSOPRAZOLE
     Dosage: UNK
  64. LANSOPRAZOLE [Suspect]
     Active Substance: LANSOPRAZOLE
     Dosage: UNK
     Route: 048
  65. LANSOPRAZOLE [Suspect]
     Active Substance: LANSOPRAZOLE
     Dosage: UNK
  66. LANSOPRAZOLE [Suspect]
     Active Substance: LANSOPRAZOLE
     Dosage: UNK
     Route: 048
  67. LANSOPRAZOLE [Suspect]
     Active Substance: LANSOPRAZOLE
     Dosage: UNK
  68. LANSOPRAZOLE [Suspect]
     Active Substance: LANSOPRAZOLE
     Dosage: PROLONGED-RELEASE CAPSULE
     Route: 048
  69. LANSOPRAZOLE [Suspect]
     Active Substance: LANSOPRAZOLE
     Dosage: UNK
  70. LANSOPRAZOLE [Suspect]
     Active Substance: LANSOPRAZOLE
     Dosage: UNK
     Route: 048
  71. LANSOPRAZOLE [Suspect]
     Active Substance: LANSOPRAZOLE
     Dosage: UNK
  72. LANSOPRAZOLE [Suspect]
     Active Substance: LANSOPRAZOLE
     Dosage: UNK
     Route: 048
  73. LANSOPRAZOLE [Suspect]
     Active Substance: LANSOPRAZOLE
     Dosage: UNK
  74. LANSOPRAZOLE [Suspect]
     Active Substance: LANSOPRAZOLE
     Dosage: PROLONGED-RELEASE CAPSULE
     Route: 048
  75. LANSOPRAZOLE [Suspect]
     Active Substance: LANSOPRAZOLE
     Dosage: UNK
  76. LANSOPRAZOLE [Suspect]
     Active Substance: LANSOPRAZOLE
     Dosage: UNK
     Route: 048
  77. LANSOPRAZOLE [Suspect]
     Active Substance: LANSOPRAZOLE
     Dosage: UNK
  78. LANSOPRAZOLE [Suspect]
     Active Substance: LANSOPRAZOLE
     Dosage: UNK
     Route: 048
  79. LANSOPRAZOLE [Suspect]
     Active Substance: LANSOPRAZOLE
     Dosage: UNK
  80. LANSOPRAZOLE [Suspect]
     Active Substance: LANSOPRAZOLE
     Dosage: PROLONGED-RELEASE CAPSULE
     Route: 048
  81. LANSOPRAZOLE [Suspect]
     Active Substance: LANSOPRAZOLE
     Dosage: UNK
  82. LANSOPRAZOLE [Suspect]
     Active Substance: LANSOPRAZOLE
     Dosage: UNK
     Route: 048
  83. LANSOPRAZOLE [Suspect]
     Active Substance: LANSOPRAZOLE
     Dosage: UNK
  84. LANSOPRAZOLE [Suspect]
     Active Substance: LANSOPRAZOLE
     Dosage: UNK
     Route: 048
  85. LANSOPRAZOLE [Suspect]
     Active Substance: LANSOPRAZOLE
     Dosage: UNK
  86. LANSOPRAZOLE [Suspect]
     Active Substance: LANSOPRAZOLE
     Dosage: PROLONGED-RELEASE CAPSULE
     Route: 048
  87. LANSOPRAZOLE [Suspect]
     Active Substance: LANSOPRAZOLE
     Dosage: UNK
  88. LANSOPRAZOLE [Suspect]
     Active Substance: LANSOPRAZOLE
     Dosage: UNK
     Route: 048
  89. LANSOPRAZOLE [Suspect]
     Active Substance: LANSOPRAZOLE
     Dosage: UNK
  90. LANSOPRAZOLE [Suspect]
     Active Substance: LANSOPRAZOLE
     Dosage: UNK
     Route: 048
  91. LANSOPRAZOLE [Suspect]
     Active Substance: LANSOPRAZOLE
     Dosage: UNK
  92. LANSOPRAZOLE [Suspect]
     Active Substance: LANSOPRAZOLE
     Dosage: PROLONGED-RELEASE CAPSULE
     Route: 048
  93. LANSOPRAZOLE [Suspect]
     Active Substance: LANSOPRAZOLE
     Dosage: UNK
  94. LANSOPRAZOLE [Suspect]
     Active Substance: LANSOPRAZOLE
     Dosage: UNK
     Route: 048
  95. LANSOPRAZOLE [Suspect]
     Active Substance: LANSOPRAZOLE
     Dosage: UNK
  96. LANSOPRAZOLE [Suspect]
     Active Substance: LANSOPRAZOLE
     Dosage: UNK
     Route: 048

REACTIONS (42)
  - Abdominal pain upper [Unknown]
  - Anaemia [Unknown]
  - Aspiration [Unknown]
  - Asthenia [Unknown]
  - Asthma [Unknown]
  - Blood calcium increased [Unknown]
  - Blood creatinine increased [Unknown]
  - Blood test abnormal [Unknown]
  - Bronchiectasis [Unknown]
  - Constipation [Unknown]
  - Cough [Unknown]
  - Drug hypersensitivity [Unknown]
  - Dyspnoea [Unknown]
  - Fatigue [Unknown]
  - Gastrooesophageal reflux disease [Unknown]
  - Haemoptysis [Unknown]
  - Headache [Unknown]
  - Hypoxia [Unknown]
  - Liver function test increased [Unknown]
  - Lower respiratory tract infection [Unknown]
  - Lung opacity [Unknown]
  - Musculoskeletal stiffness [Unknown]
  - Obstructive airways disorder [Unknown]
  - Pleuritic pain [Unknown]
  - Pneumonia [Unknown]
  - Pulmonary fibrosis [Unknown]
  - Rales [Unknown]
  - Sputum discoloured [Unknown]
  - Total lung capacity decreased [Unknown]
  - Transaminases increased [Unknown]
  - Tremor [Unknown]
  - Upper respiratory tract infection [Unknown]
  - Wheezing [Unknown]
  - General physical health deterioration [Unknown]
  - Pulmonary mass [Unknown]
  - Pain [Unknown]
  - Pleural effusion [Unknown]
  - Bronchopulmonary aspergillosis allergic [Unknown]
  - Oedema peripheral [Unknown]
  - Pyrexia [Unknown]
  - Drug ineffective [Unknown]
  - Product dose omission issue [Unknown]
